FAERS Safety Report 5660830-5 (Version None)
Quarter: 2008Q1

REPORT INFORMATION
  Report Type: 
  Country: None (occurrence: None)
  Receive Date: 20080311
  Receipt Date: 20080228
  Transmission Date: 20080703
  Serious: Yes (Other)
  Sender: FDA-Public Use
  Company Number: US-BAYER-200814343GPV

PATIENT
  Age: 42 Year
  Sex: Female

DRUGS (2)
  1. NEXAVAR [Suspect]
     Indication: ANGIOSARCOMA
     Route: 065
  2. SUTENT [Suspect]
     Indication: ANGIOSARCOMA
     Route: 065

REACTIONS (2)
  - HYPERTENSION [None]
  - PROTEINURIA [None]
